FAERS Safety Report 19819413 (Version 1)
Quarter: 2021Q3

REPORT INFORMATION
  Report Type: Report from Study
  Country: EG (occurrence: EG)
  Receive Date: 20210913
  Receipt Date: 20210913
  Transmission Date: 20211014
  Serious: Yes (Other)
  Sender: FDA-Public Use
  Company Number: NVSC2021EG202374

PATIENT
  Age: 65 Year
  Sex: Male

DRUGS (1)
  1. ENTRESTO [Suspect]
     Active Substance: SACUBITRIL\VALSARTAN
     Indication: CARDIAC FAILURE
     Dosage: 50 MG, QD
     Route: 048
     Dates: start: 20190101

REACTIONS (8)
  - Cerebrovascular accident [Recovered/Resolved]
  - Atrial fibrillation [Not Recovered/Not Resolved]
  - Renal impairment [Unknown]
  - Confusional state [Recovered/Resolved]
  - Balance disorder [Recovered/Resolved]
  - Inappropriate schedule of product administration [Unknown]
  - Memory impairment [Recovered/Resolved]
  - Product dose omission issue [Unknown]

NARRATIVE: CASE EVENT DATE: 20190101
